FAERS Safety Report 8837307 (Version 1)
Quarter: 2012Q4

REPORT INFORMATION
  Report Type: 
  Country: ES (occurrence: ES)
  Receive Date: 20121011
  Receipt Date: 20121011
  Transmission Date: 20130627
  Serious: Yes (Other)
  Sender: FDA-Public Use
  Company Number: ES-ROCHE-1140061

PATIENT
  Age: 53 Year
  Sex: Male

DRUGS (3)
  1. PEGASYS [Suspect]
     Indication: HEPATITIS C
     Route: 058
     Dates: start: 20120130, end: 20120308
  2. RIBAVIRIN [Interacting]
     Indication: HEPATITIS C
     Route: 048
     Dates: start: 20120130, end: 20120308
  3. VICTRELIS [Interacting]
     Indication: HEPATITIS C
     Route: 048
     Dates: start: 20120229, end: 20120308

REACTIONS (7)
  - Insomnia [Recovered/Resolved]
  - Thinking abnormal [Recovered/Resolved]
  - Suicidal ideation [Recovered/Resolved]
  - Decreased appetite [Recovered/Resolved]
  - Gingivitis [Recovered/Resolved]
  - Weight decreased [Recovered/Resolved]
  - Nausea [Recovered/Resolved]
